FAERS Safety Report 4393247-4 (Version None)
Quarter: 2004Q3

REPORT INFORMATION
  Report Type: 
  Country: None (occurrence: None)
  Receive Date: 20040702
  Receipt Date: 20040618
  Transmission Date: 20050211
  Serious: Yes (Death, Hospitalization)
  Sender: FDA-Public Use
  Company Number: GB-JNJFOC-20040605724

PATIENT
  Age: 57 Year
  Sex: Female

DRUGS (5)
  1. REMICADE [Suspect]
     Indication: METASTATIC RENAL CELL CARCINOMA
     Dosage: 405 MG, 1 IN 8 WEEK, INTRAVENOUS
     Route: 042
     Dates: start: 20040524
  2. SEVREDOL (MORPHINE SULFATE) [Concomitant]
  3. ZOMORPH (ALL OTHER THERAPEUTIC PRODUCTS) [Concomitant]
  4. DICLOFENAC [Concomitant]
  5. BECLOMETHASONE DIPROPIONATE [Concomitant]

REACTIONS (6)
  - ATRIOVENTRICULAR BLOCK [None]
  - CARDIOMYOPATHY [None]
  - DEHYDRATION [None]
  - LUNG INFECTION [None]
  - PYREXIA [None]
  - SEPTIC SHOCK [None]
